FAERS Safety Report 8067829-2 (Version None)
Quarter: 2012Q1

REPORT INFORMATION
  Report Type: 
  Country: None (occurrence: None)
  Receive Date: 20120124
  Receipt Date: 20120118
  Transmission Date: 20120608
  Serious: Yes (Hospitalization)
  Sender: FDA-Public Use
  Company Number: US-ROCHE-1010404

PATIENT
  Sex: Female

DRUGS (3)
  1. TELAPREVIR [Suspect]
     Indication: HEPATITIS C
     Dates: start: 20111006
  2. COPEGUS [Suspect]
     Indication: HEPATITIS C
     Dates: start: 20111006
  3. PEGINTERFERON ALFA-2A [Suspect]
     Indication: HEPATITIS C
     Dates: start: 20111006

REACTIONS (12)
  - ASTHENIA [None]
  - DEPRESSIVE SYMPTOM [None]
  - INSOMNIA [None]
  - VOMITING [None]
  - DRUG DOSE OMISSION [None]
  - WHITE BLOOD CELL COUNT DECREASED [None]
  - NAUSEA [None]
  - BLOOD PRESSURE INCREASED [None]
  - CRYING [None]
  - HOSPITALISATION [None]
  - FATIGUE [None]
  - ANAEMIA [None]
